FAERS Safety Report 10213926 (Version 1)
Quarter: 2014Q2

REPORT INFORMATION
  Report Type: Spontaneous
  Country: US (occurrence: US)
  Receive Date: 20140603
  Receipt Date: 20140603
  Transmission Date: 20141212
  Serious: No
  Sender: FDA-Public Use
  Company Number: US-BAYER-2014-082569

PATIENT
  Age: 83 Year
  Sex: Male
  Weight: 68 kg

DRUGS (2)
  1. ALEVE CAPLET [Suspect]
     Dosage: UNK
     Route: 048
  2. ALEVE CAPLET [Suspect]
     Dosage: 2 DF, BID
     Route: 048
     Dates: start: 20140530, end: 20140530

REACTIONS (1)
  - Extra dose administered [None]
